FAERS Safety Report 6098345-5 (Version None)
Quarter: 2009Q1

REPORT INFORMATION
  Report Type: 
  Country: None (occurrence: None)
  Receive Date: 20090302
  Receipt Date: 20090219
  Transmission Date: 20090719
  Serious: Yes (Other)
  Sender: FDA-Public Use
  Company Number: US-BAYER-200913933NA

PATIENT
  Age: 39 Year
  Sex: Female
  Weight: 86 kg

DRUGS (5)
  1. MIRENA [Suspect]
     Indication: CONTRACEPTION
     Route: 015
     Dates: start: 20040301, end: 20080301
  2. MIRENA [Suspect]
     Route: 015
     Dates: start: 20080301, end: 20090223
  3. RHINACORT [Concomitant]
     Indication: SEASONAL ALLERGY
  4. LEVOTHYROXINE SODIUM [Concomitant]
     Indication: HYPOTHYROIDISM
  5. MULTIPLE VITAMINS [Concomitant]
     Indication: MEDICAL DIET

REACTIONS (4)
  - ABDOMINAL PAIN [None]
  - PROCEDURAL PAIN [None]
  - SCAN LYMPH NODES [None]
  - SCAR [None]
